FAERS Safety Report 24676641 (Version 1)
Quarter: 2024Q4

REPORT INFORMATION
  Report Type: Spontaneous
  Country: US (occurrence: US)
  Receive Date: 20241128
  Receipt Date: 20241128
  Transmission Date: 20250115
  Serious: No
  Sender: AMGEN
  Company Number: US-AMGEN-USASP2024232347

PATIENT
  Sex: Female

DRUGS (1)
  1. RAVICTI [Suspect]
     Active Substance: GLYCEROL PHENYLBUTYRATE
     Indication: Argininosuccinate lyase deficiency
     Dosage: 3 MILLILITER, TID (PACKAGING SIZE: 1.1GM/ML)
     Route: 048
     Dates: start: 202310

REACTIONS (1)
  - Drug hypersensitivity [Not Recovered/Not Resolved]
